FAERS Safety Report 13263817 (Version 1)
Quarter: 2017Q1

REPORT INFORMATION
  Report Type: Spontaneous
  Country: US (occurrence: US)
  Receive Date: 20170222
  Receipt Date: 20170222
  Transmission Date: 20170428
  Serious: Yes (Life-Threatening, Disabling, Other)
  Sender: FDA-Public Use
  Company Number: None

PATIENT
  Age: 63 Year
  Sex: Female
  Weight: 90 kg

DRUGS (14)
  1. OMEPRAZOLE. [Concomitant]
     Active Substance: OMEPRAZOLE
  2. VITAMIN C1000 UNITS [Concomitant]
  3. DULOXETINE HCL [Suspect]
     Active Substance: DULOXETINE HYDROCHLORIDE
     Indication: DEPRESSION
     Dosage: ?          QUANTITY:1 CAPSULE(S);?
     Route: 048
     Dates: start: 20080101, end: 20170131
  4. LIDOCAINE 5% PATCH [Concomitant]
     Active Substance: LIDOCAINE
  5. VITAMINS E400 UNITS [Concomitant]
  6. CALCIUM 1200 UNITS [Concomitant]
  7. ATENOL [Concomitant]
     Active Substance: ATENOLOL
  8. LEVOTHYROXINE. [Concomitant]
     Active Substance: LEVOTHYROXINE
  9. FISH OIL [Concomitant]
     Active Substance: FISH OIL
  10. DULOXETINE HCL [Suspect]
     Active Substance: DULOXETINE HYDROCHLORIDE
     Indication: FIBROMYALGIA
     Dosage: ?          QUANTITY:1 CAPSULE(S);?
     Route: 048
     Dates: start: 20080101, end: 20170131
  11. HYDROXYCHLOROQUINE [Concomitant]
     Active Substance: HYDROXYCHLOROQUINE
  12. METHYLPREDNISOLONE. [Concomitant]
     Active Substance: METHYLPREDNISOLONE
  13. VITAMIN B COMPLEX [Concomitant]
     Active Substance: CYANOCOBALAMIN\DEXPANTHENOL\NIACINAMIDE\PYRIDOXINE HYDROCHLORIDE\RIBOFLAVIN 5^-PHOSPHATE SODIUM\THIAMINE HYDROCHLORIDE\VITAMIN B COMPLEX
  14. VITAMIN D2000 UNITS [Concomitant]

REACTIONS (6)
  - Withdrawal syndrome [None]
  - Headache [None]
  - Feeling abnormal [None]
  - Impaired driving ability [None]
  - Orthostatic hypotension [None]
  - Blood pressure increased [None]

NARRATIVE: CASE EVENT DATE: 20170203
